FAERS Safety Report 8796011 (Version 1)
Quarter: 2012Q4

REPORT INFORMATION
  Report Type: 
  Country: US (occurrence: US)
  Receive Date: 20120920
  Receipt Date: 20120920
  Transmission Date: 20130627
  Serious: No
  Sender: FDA-Public Use
  Company Number: US-BAYER-2012-097469

PATIENT
  Age: 45 Year
  Sex: Female

DRUGS (7)
  1. ALEVE CAPLET/TABLET,MIDOL EXTENDED RELIEF CAPLET [Suspect]
     Indication: ARTHRALGIA
     Route: 048
  2. ALEVE CAPLET/TABLET,MIDOL EXTENDED RELIEF CAPLET [Suspect]
     Indication: SCIATICA
  3. BAYER GENUINE ASPIRIN ORIGINAL STRENGTH [Suspect]
     Indication: ARTHRALGIA
     Route: 048
  4. BAYER GENUINE ASPIRIN ORIGINAL STRENGTH [Suspect]
     Indication: SCIATICA
  5. UNKNOWN DRUG [Suspect]
  6. IBUPROFEN [Suspect]
  7. TYLENOL [Suspect]

REACTIONS (1)
  - Arthralgia [None]
